FAERS Safety Report 5923758-9 (Version None)
Quarter: 2008Q4

REPORT INFORMATION
  Report Type: 
  Country: None (occurrence: None)
  Receive Date: 20081020
  Receipt Date: 20081014
  Transmission Date: 20090506
  Serious: Yes (Life-Threatening)
  Sender: FDA-Public Use
  Company Number: JP-ASTRAZENECA-2008AP07583

PATIENT
  Age: 79 Year
  Sex: Male
  Weight: 56 kg

DRUGS (9)
  1. OMEPRAZOLE [Suspect]
     Indication: REFLUX OESOPHAGITIS
     Route: 048
     Dates: start: 20080901
  2. PLAVIX [Suspect]
     Route: 048
  3. FRANDOL S [Concomitant]
     Route: 062
     Dates: start: 20080829
  4. SIGMART [Concomitant]
     Route: 048
     Dates: start: 20080829
  5. MUCOSTA [Concomitant]
     Route: 048
     Dates: start: 20080829
  6. ASPIRIN [Concomitant]
     Route: 048
  7. RENIVACE [Concomitant]
     Route: 048
  8. ALDACTONE [Concomitant]
     Route: 048
  9. ITOROL [Concomitant]
     Route: 048

REACTIONS (1)
  - THROMBOSIS IN DEVICE [None]
